FAERS Safety Report 15807505 (Version 1)
Quarter: 2019Q1

REPORT INFORMATION
  Report Type: Spontaneous
  Country: US (occurrence: US)
  Receive Date: 20190110
  Receipt Date: 20190110
  Transmission Date: 20190417
  Serious: Yes (Hospitalization)
  Sender: FDA-Public Use
  Company Number: None

PATIENT
  Age: 20 Month
  Sex: Female
  Weight: 9 kg

DRUGS (2)
  1. ANASCORP [Suspect]
     Active Substance: SCORPION (CENTRUROIDES) IMMUNE FAB2 ANTIVENIN (EQUINE)
     Indication: ARTHROPOD STING
     Dosage: ?          OTHER FREQUENCY:ONE TIME;?
     Route: 042
     Dates: start: 20180801, end: 20180801
  2. MIDAZOLAM [Concomitant]
     Active Substance: MIDAZOLAM HYDROCHLORIDE
     Dates: start: 20180801, end: 20180801

REACTIONS (4)
  - Urticaria [None]
  - Motor dysfunction [None]
  - Arthropod sting [None]
  - Autonomic nervous system imbalance [None]

NARRATIVE: CASE EVENT DATE: 20180801
